FAERS Safety Report 5882673-X (Version None)
Quarter: 2008Q3

REPORT INFORMATION
  Report Type: 
  Country: None (occurrence: None)
  Receive Date: 20080913
  Receipt Date: 20080813
  Transmission Date: 20090109
  Serious: No
  Sender: FDA-Public Use
  Company Number: US-ABBOTT-08P-163-0470420-00

PATIENT
  Sex: Male

DRUGS (3)
  1. HUMIRA [Suspect]
     Indication: PSORIASIS
     Route: 058
     Dates: start: 20080722
  2. UNNAMED MEDICATION [Concomitant]
     Indication: HYPERTENSION
  3. OMEPRAZOLE MAGNESIUM [Concomitant]
     Indication: GASTRIC DISORDER

REACTIONS (1)
  - DRUG INEFFECTIVE [None]
